FAERS Safety Report 23070983 (Version 1)
Quarter: 2023Q4

REPORT INFORMATION
  Report Type: Spontaneous
  Country: US (occurrence: US)
  Receive Date: 20231016
  Receipt Date: 20231016
  Transmission Date: 20240110
  Serious: No
  Sender: FDA-Public Use
  Company Number: US-PFIZER INC-PV202300168399

PATIENT
  Age: 53 Year
  Sex: Female

DRUGS (11)
  1. CIPROFLOXACIN [Suspect]
     Active Substance: CIPROFLOXACIN
     Dosage: UNK
  2. IBRANCE [Concomitant]
     Active Substance: PALBOCICLIB
     Dosage: 75 MG, CYCLIC (TAKE ONCE DAILY FOR 21 DAYS)
     Route: 048
     Dates: start: 20230917
  3. FEMARA [Concomitant]
     Active Substance: LETROZOLE
     Dosage: 2.5 MG, DAILY
     Route: 048
  4. CELEXA [Concomitant]
     Active Substance: CITALOPRAM HYDROBROMIDE
     Dosage: 10 MG, ONCE DAILY
     Route: 048
  5. LIPITOR [Concomitant]
     Active Substance: ATORVASTATIN CALCIUM
     Dosage: 10 MG, DAILY
     Route: 048
  6. COMPAZINE [Concomitant]
     Active Substance: PROCHLORPERAZINE MALEATE
     Indication: Nausea
     Dosage: 10 MG, AS NEEDED (EVERY 6 HOURS)
     Route: 048
  7. COMPAZINE [Concomitant]
     Active Substance: PROCHLORPERAZINE MALEATE
     Indication: Vomiting
  8. NORCO [Concomitant]
     Active Substance: ACETAMINOPHEN\HYDROCODONE BITARTRATE
     Indication: Pain management
     Dosage: UNK, AS NEEDED (WITH FOOD EVERY 4-6 HOURS )
     Route: 048
  9. MOTRIN [Concomitant]
     Active Substance: IBUPROFEN
     Dosage: 600 MG, AS NEEDED (EVERY 8 HOURS)
     Route: 048
  10. VITAMIN D3 [Concomitant]
     Active Substance: CHOLECALCIFEROL
     Dosage: UNK
     Route: 048
  11. HERBALS\TURMERIC [Concomitant]
     Active Substance: HERBALS\TURMERIC
     Dosage: UNK
     Route: 048

REACTIONS (2)
  - Drug hypersensitivity [Unknown]
  - Rash [Unknown]

NARRATIVE: CASE EVENT DATE: 20140812
